FAERS Safety Report 24098198 (Version 4)
Quarter: 2024Q3

REPORT INFORMATION
  Report Type: Spontaneous
  Country: AU (occurrence: AU)
  Receive Date: 20240716
  Receipt Date: 20240723
  Transmission Date: 20241016
  Serious: Yes (Death, Life-Threatening, Hospitalization)
  Sender: PFIZER
  Company Number: AU-MLMSERVICE-20240710-PI122722-00177-1

PATIENT
  Age: 7 Decade
  Sex: Female
  Weight: 50 kg

DRUGS (14)
  1. METHYLPREDNISOLONE SODIUM SUCCINATE [Suspect]
     Active Substance: METHYLPREDNISOLONE SODIUM SUCCINATE
     Indication: Dermatomyositis
     Dosage: UNK
     Route: 042
  2. TOFACITINIB CITRATE [Suspect]
     Active Substance: TOFACITINIB CITRATE
     Indication: Dermatomyositis
     Dosage: 5 MG TWO TIMES PER DAY
  3. HYDROCORTISONE SODIUM SUCCINATE [Suspect]
     Active Substance: HYDROCORTISONE SODIUM SUCCINATE
     Indication: Dermatomyositis
     Dosage: 50 MG FOUR TIMES A DAY
  4. THYMOCYTE IMMUNE GLOBULIN NOS [Suspect]
     Active Substance: THYMOCYTE IMMUNE GLOBULIN NOS
     Indication: Dermatomyositis
     Dosage: 2 DF (50 G)
     Route: 042
  5. CYCLOPHOSPHAMIDE [Suspect]
     Active Substance: CYCLOPHOSPHAMIDE
     Indication: Anti-melanoma differentiation-associated protein 5 antibody positive
     Dosage: 750 MG (0.5 G/M2, BSA 1.5 M2)
  6. TACROLIMUS [Suspect]
     Active Substance: TACROLIMUS
     Indication: Anti-melanoma differentiation-associated protein 5 antibody positive
     Dosage: TITRATED
     Route: 042
  7. AMPHOTERICIN B [Concomitant]
     Active Substance: AMPHOTERICIN B
     Indication: Antiviral prophylaxis
  8. AMPHOTERICIN B [Concomitant]
     Active Substance: AMPHOTERICIN B
     Indication: Antifungal prophylaxis
  9. GANCICLOVIR [Concomitant]
     Active Substance: GANCICLOVIR
     Indication: Antiviral prophylaxis
  10. GANCICLOVIR [Concomitant]
     Active Substance: GANCICLOVIR
     Indication: Antifungal prophylaxis
  11. SULFAMETHOXAZOLE\TRIMETHOPRIM [Concomitant]
     Active Substance: SULFAMETHOXAZOLE\TRIMETHOPRIM
     Indication: Antiviral prophylaxis
  12. SULFAMETHOXAZOLE\TRIMETHOPRIM [Concomitant]
     Active Substance: SULFAMETHOXAZOLE\TRIMETHOPRIM
     Indication: Antifungal prophylaxis
  13. ENTECAVIR [Concomitant]
     Active Substance: ENTECAVIR
     Indication: Hepatitis B
  14. ISONIAZID [Concomitant]
     Active Substance: ISONIAZID
     Indication: Tuberculosis

REACTIONS (5)
  - Pneumonia pseudomonal [Fatal]
  - Pneumonia streptococcal [Fatal]
  - Pneumonia [Fatal]
  - Sepsis [Fatal]
  - Pseudomonas infection [Fatal]
